FAERS Safety Report 8776412 (Version 1)
Quarter: 2012Q4

REPORT INFORMATION
  Report Type: 
  Country: US (occurrence: US)
  Receive Date: 20120910
  Receipt Date: 20120910
  Transmission Date: 20130627
  Serious: Yes (Other)
  Sender: FDA-Public Use
  Company Number: US-JNJFOC-20120900101

PATIENT
  Age: 15 None
  Sex: Female
  Weight: 92.53 kg

DRUGS (10)
  1. INVEGA [Suspect]
     Indication: PSYCHOTIC DISORDER
     Route: 048
     Dates: start: 201203, end: 20120828
  2. INVEGA [Suspect]
     Indication: PSYCHOTIC DISORDER
     Route: 048
     Dates: start: 201109, end: 201203
  3. INVEGA [Suspect]
     Indication: PSYCHOTIC DISORDER
     Route: 048
     Dates: start: 20120829
  4. INVEGA [Suspect]
     Indication: PSYCHOTIC DISORDER
     Route: 048
     Dates: start: 201109, end: 201109
  5. INVEGA [Suspect]
     Indication: BIPOLAR DISORDER
     Route: 048
     Dates: start: 20120829
  6. INVEGA [Suspect]
     Indication: BIPOLAR DISORDER
     Route: 048
     Dates: start: 201203, end: 20120828
  7. INVEGA [Suspect]
     Indication: BIPOLAR DISORDER
     Route: 048
     Dates: start: 201109, end: 201203
  8. INVEGA [Suspect]
     Indication: BIPOLAR DISORDER
     Route: 048
     Dates: start: 201109, end: 201109
  9. SEROQUEL [Suspect]
     Indication: PSYCHOTIC DISORDER
     Route: 065
     Dates: start: 201205, end: 201205
  10. LOXAPINE [Suspect]
     Indication: PSYCHOTIC DISORDER
     Route: 065
     Dates: start: 201207, end: 201207

REACTIONS (13)
  - Paranoia [Recovered/Resolved]
  - Post-traumatic stress disorder [Not Recovered/Not Resolved]
  - Blood prolactin increased [Not Recovered/Not Resolved]
  - Hallucination [Recovered/Resolved]
  - Insulin resistance [Not Recovered/Not Resolved]
  - Coordination abnormal [Unknown]
  - Hypersensitivity [Recovered/Resolved]
  - Mood altered [Recovered/Resolved]
  - Adverse drug reaction [Not Recovered/Not Resolved]
  - Drooling [Not Recovered/Not Resolved]
  - Musculoskeletal stiffness [Not Recovered/Not Resolved]
  - Tic [Not Recovered/Not Resolved]
  - Incorrect dose administered [Not Recovered/Not Resolved]
